FAERS Safety Report 7565037-2 (Version None)
Quarter: 2011Q2

REPORT INFORMATION
  Report Type: 
  Country: None (occurrence: None)
  Receive Date: 20110622
  Receipt Date: 20110413
  Transmission Date: 20111010
  Serious: Yes (Death)
  Sender: FDA-Public Use
  Company Number: US-MYLANLABS-2011S1007529

PATIENT
  Sex: Male

DRUGS (11)
  1. WELLBUTRIN XL [Concomitant]
  2. TRICOR [Concomitant]
  3. RESTORIL [Concomitant]
  4. XANAX [Concomitant]
  5. LEXAPRO [Concomitant]
  6. LOPRESSOR [Concomitant]
     Dosage: EXTENDED RELEASE
  7. CLOZAPINE [Suspect]
  8. CLOZAPINE [Suspect]
  9. RISPERDAL [Concomitant]
  10. PRILOSEC [Concomitant]
  11. ASPIRIN [Concomitant]

REACTIONS (1)
  - DEATH [None]
